FAERS Safety Report 10703172 (Version 5)
Quarter: 2015Q3

REPORT INFORMATION
  Report Type: Spontaneous
  Country: US (occurrence: US)
  Receive Date: 20150112
  Receipt Date: 20150715
  Transmission Date: 20151125
  Serious: Yes (Hospitalization, Other)
  Sender: FDA-Public Use
  Company Number: US-JNJFOC-20150105358

PATIENT
  Age: 37 Year
  Sex: Female
  Weight: 61.24 kg

DRUGS (8)
  1. TYLENOL PM [Suspect]
     Active Substance: ACETAMINOPHEN\DIPHENHYDRAMINE
     Indication: SLEEP DISORDER
     Route: 065
  2. ETHYL ALCOHOL [Suspect]
     Active Substance: ALCOHOL
     Indication: PRODUCT USED FOR UNKNOWN INDICATION
     Route: 065
     Dates: start: 200906
  3. ANTIDEPRESSANTS [Concomitant]
     Active Substance: UNSPECIFIED INGREDIENT
     Indication: PRODUCT USED FOR UNKNOWN INDICATION
     Route: 065
  4. TYLENOL EXTRA STRENGTH [Suspect]
     Active Substance: ACETAMINOPHEN
     Indication: SLEEP DISORDER THERAPY
     Route: 048
     Dates: start: 200904, end: 20090609
  5. TYLENOL EXTRA STRENGTH NIGHTTIME [Suspect]
     Active Substance: ACETAMINOPHEN\DIPHENHYDRAMINE HYDROCHLORIDE
     Indication: HEADACHE
     Route: 048
     Dates: start: 200904, end: 20090609
  6. TYLENOL EXTRA STRENGTH NIGHTTIME [Suspect]
     Active Substance: ACETAMINOPHEN\DIPHENHYDRAMINE HYDROCHLORIDE
     Indication: INSOMNIA
     Route: 048
     Dates: start: 200904, end: 20090609
  7. TOPAMAX [Concomitant]
     Active Substance: TOPIRAMATE
     Indication: SEIZURE
     Dosage: FOR (8-9) MONTHS.
     Route: 048
  8. TYLENOL EXTRA STRENGTH [Suspect]
     Active Substance: ACETAMINOPHEN
     Indication: HEADACHE
     Route: 048
     Dates: start: 200904, end: 20090609

REACTIONS (2)
  - Acute hepatic failure [Recovering/Resolving]
  - Accidental overdose [Unknown]

NARRATIVE: CASE EVENT DATE: 200906
